FAERS Safety Report 18617391 (Version 1)
Quarter: 2020Q4

REPORT INFORMATION
  Report Type: Report from Study
  Country: US (occurrence: US)
  Receive Date: 20201215
  Receipt Date: 20201215
  Transmission Date: 20210114
  Serious: Yes (Hospitalization, Other)
  Sender: FDA-Public Use
  Company Number: US-GILEAD-2020-0508871

PATIENT
  Age: 5 Year
  Sex: Female

DRUGS (9)
  1. CIPROFLOXACIN. [Concomitant]
     Active Substance: CIPROFLOXACIN
  2. AQUADEKS PEDIATRIC LIQUID [Concomitant]
     Active Substance: MINERALS\VITAMINS
  3. AZITHROMYCIN ANHYDROUS. [Concomitant]
     Active Substance: AZITHROMYCIN ANHYDROUS
  4. PULMOZYME [Concomitant]
     Active Substance: DORNASE ALFA
  5. CREON [Concomitant]
     Active Substance: PANCRELIPASE AMYLASE\PANCRELIPASE LIPASE\PANCRELIPASE PROTEASE
  6. BETHKIS [Concomitant]
     Active Substance: TOBRAMYCIN
  7. SYMDEKO [Concomitant]
     Active Substance: IVACAFTOR\TEZACAFTOR
  8. ALBUTEROL [SALBUTAMOL] [Concomitant]
     Active Substance: ALBUTEROL
  9. AZTREONAM LYSINE [Suspect]
     Active Substance: AZTREONAM LYSINE
     Indication: CYSTIC FIBROSIS LUNG
     Dosage: 75 MG, TID, FOR 28 DAYS FOLLOWED BY 28 DAYS OFF
     Route: 055
     Dates: start: 20181107

REACTIONS (1)
  - Pneumonia [Unknown]

NARRATIVE: CASE EVENT DATE: 20201117
